FAERS Safety Report 4982811-7 (Version None)
Quarter: 2006Q2

REPORT INFORMATION
  Report Type: 
  Country: None (occurrence: None)
  Receive Date: 20060420
  Receipt Date: 20060403
  Transmission Date: 20061013
  Serious: Yes (Other)
  Sender: FDA-Public Use
  Company Number: DSA_27837_2006

PATIENT
  Age: 77 Year
  Sex: Female
  Weight: 65.7716 kg

DRUGS (3)
  1. CARDIZEM LA [Suspect]
     Indication: BLOOD PRESSURE
     Dosage: 180 MG Q DAY PO
     Route: 048
     Dates: start: 20060201, end: 20060222
  2. CARDIZEM LA [Suspect]
     Indication: BLOOD PRESSURE
     Dosage: 240 MG Q DAY PO
     Route: 048
     Dates: start: 20060222
  3. NEBULIZER [Concomitant]

REACTIONS (2)
  - COUGH [None]
  - OEDEMA PERIPHERAL [None]
